FAERS Safety Report 8769495 (Version 2)
Quarter: 2012Q4

REPORT INFORMATION
  Report Type: 
  Country: US (occurrence: US)
  Receive Date: 20120905
  Receipt Date: 20121016
  Transmission Date: 20130627
  Serious: No
  Sender: FDA-Public Use
  Company Number: US-B.I. PHARMACEUTICALS,INC./RIDGEFIELD-2012-BP-21174BP

PATIENT
  Age: 74 Year
  Sex: Female

DRUGS (10)
  1. PRADAXA [Suspect]
     Dosage: 300 mg
     Route: 048
  2. SIMIVISTATIN [Concomitant]
  3. ASA [Concomitant]
  4. GLUCOVANCE [Concomitant]
  5. AMLODIPINE [Concomitant]
  6. CARVEDILOL [Concomitant]
  7. GABAPENTIN [Concomitant]
  8. OMEPRAZOLE [Concomitant]
  9. COMBIVENT MDI [Concomitant]
  10. HYDROCODONE [Concomitant]

REACTIONS (3)
  - Amnesia [Not Recovered/Not Resolved]
  - Memory impairment [Recovered/Resolved]
  - Memory impairment [Recovered/Resolved]
